FAERS Safety Report 17730027 (Version 4)
Quarter: 2021Q4

REPORT INFORMATION
  Report Type: Spontaneous
  Country: CH (occurrence: None)
  Receive Date: 20200430
  Receipt Date: 20211206
  Transmission Date: 20220303
  Serious: Yes (Other)
  Sender: FDA-Public Use
  Company Number: 2020SE57797

PATIENT
  Age: 28 Year
  Sex: Female

DRUGS (18)
  1. NEXIUM [Suspect]
     Active Substance: ESOMEPRAZOLE MAGNESIUM
     Indication: Abdominal pain upper
     Dosage: 80 MILLIGRAM, 1/DAY
     Route: 048
     Dates: start: 20200401, end: 20200404
  2. NEXIUM I.V. [Suspect]
     Active Substance: ESOMEPRAZOLE SODIUM
     Indication: Nausea
     Dosage: 40 MILLIGRAM, 1/DAY
     Route: 042
     Dates: start: 20200404, end: 20200405
  3. PRIMPERAN [Suspect]
     Active Substance: METOCLOPRAMIDE HYDROCHLORIDE
     Indication: Nausea
     Dosage: UNK, 1/DAY
     Route: 030
     Dates: start: 20200401, end: 20200404
  4. PRIMPERAN [Suspect]
     Active Substance: METOCLOPRAMIDE HYDROCHLORIDE
     Indication: Vomiting
     Dosage: UNK, 1/DAY
     Route: 030
     Dates: start: 20200401, end: 20200404
  5. PRIMPERAN [Suspect]
     Active Substance: METOCLOPRAMIDE HYDROCHLORIDE
     Indication: Nausea
     Dosage: UNK, 1/DAY
     Route: 048
     Dates: start: 20200401, end: 20200404
  6. PRIMPERAN [Suspect]
     Active Substance: METOCLOPRAMIDE HYDROCHLORIDE
     Indication: Vomiting
     Dosage: UNK, 1/DAY
     Route: 048
     Dates: start: 20200401, end: 20200404
  7. PRIMPERAN [Suspect]
     Active Substance: METOCLOPRAMIDE HYDROCHLORIDE
     Indication: Nausea
     Dosage: 10 MILLIGRAM, ONCE10.0MG ONCE/SINGLE ADMINISTRATION
     Route: 042
     Dates: end: 20200404
  8. PRIMPERAN [Suspect]
     Active Substance: METOCLOPRAMIDE HYDROCHLORIDE
     Indication: Vomiting
     Dosage: 10 MILLIGRAM, ONCE10.0MG ONCE/SINGLE ADMINISTRATION
     Route: 042
     Dates: end: 20200404
  9. METOCLOPRAMIDE HYDROCHLORIDE [Suspect]
     Active Substance: METOCLOPRAMIDE HYDROCHLORIDE
     Indication: Nausea
     Dosage: 10 MILLIGRAM, ONCE10.0MG ONCE/SINGLE ADMINISTRATION
     Route: 042
     Dates: end: 20200404
  10. ZOFRAN [Suspect]
     Active Substance: ONDANSETRON HYDROCHLORIDE
     Indication: Nausea
     Dosage: 4 MILLIGRAM, 2/DAY
     Route: 048
     Dates: start: 20200403, end: 20200404
  11. ZOFRAN [Suspect]
     Active Substance: ONDANSETRON HYDROCHLORIDE
     Indication: Nausea
     Dosage: 4 MILLIGRAM, ONCE4.0MG ONCE/SINGLE ADMINISTRATION
     Route: 042
     Dates: end: 20200404
  12. ACETAMINOPHEN [Concomitant]
     Active Substance: ACETAMINOPHEN
     Indication: Pyrexia
     Dosage: 3 GRAM, 1/DAY
     Route: 048
     Dates: start: 20200322, end: 20200329
  13. ACETAMINOPHEN [Concomitant]
     Active Substance: ACETAMINOPHEN
     Indication: Rhinorrhoea
     Dosage: 3 GRAM, 1/DAY
     Route: 048
     Dates: start: 20200322, end: 20200329
  14. ACETAMINOPHEN [Concomitant]
     Active Substance: ACETAMINOPHEN
     Indication: Pyrexia
     Dosage: UNK
     Route: 048
     Dates: start: 20200405, end: 20200405
  15. ACETAMINOPHEN [Concomitant]
     Active Substance: ACETAMINOPHEN
     Indication: Rhinorrhoea
     Dosage: UNK
     Route: 048
     Dates: start: 20200405, end: 20200405
  16. AKINETON [Concomitant]
     Active Substance: BIPERIDEN HYDROCHLORIDE
     Indication: Dystonia
     Dosage: 5 MILLIGRAM, 1/DAY
     Route: 042
     Dates: start: 20200404, end: 20200405
  17. DIAZEPAM [Concomitant]
     Active Substance: DIAZEPAM
     Indication: Dystonia
     Dosage: 2 MILLIGRAM, 2/DAY
     Route: 030
     Dates: start: 20200405, end: 20200405
  18. DESOREN [DESOGESTREL;ETHINYLESTRADIOL] [Concomitant]
     Dosage: 0.02 MILLIGRAM, 1/DAY
     Route: 048

REACTIONS (3)
  - Drug-induced liver injury [Recovered/Resolved with Sequelae]
  - Hepatocellular injury [Recovered/Resolved]
  - Overdose [Recovered/Resolved]

NARRATIVE: CASE EVENT DATE: 20200401
